FAERS Safety Report 4575370-4 (Version None)
Quarter: 2005Q1

REPORT INFORMATION
  Report Type: 
  Country: None (occurrence: None)
  Receive Date: 20050131
  Receipt Date: 20050131
  Transmission Date: 20050727
  Serious: Yes (Hospitalization, Disabling)
  Sender: FDA-Public Use
  Company Number: None

PATIENT
  Age: 53 Year
  Sex: Female
  Weight: 72.5755 kg

DRUGS (5)
  1. LEVAQUIN [Suspect]
     Indication: URINARY TRACT INFECTION
     Dosage: 1 TABLET   DAILY  ORAL
     Route: 048
     Dates: start: 20021202, end: 20021206
  2. LEVAQUIN [Suspect]
     Indication: URINARY TRACT INFECTION
     Dosage: 1 TABLET  DAILY  ORAL
     Route: 048
     Dates: start: 20031114, end: 20031126
  3. IMMUNE GLOBULIN INTRAVENOUS (HUMAN) [Concomitant]
  4. PREDISONE [Concomitant]
  5. SOLU-MEDROL [Concomitant]

REACTIONS (3)
  - CHRONIC INFLAMMATORY DEMYELINATING POLYRADICULONEUROPATHY [None]
  - DIFFICULTY IN WALKING [None]
  - FALL [None]
